FAERS Safety Report 19458748 (Version 2)
Quarter: 2021Q3

REPORT INFORMATION
  Report Type: Report from Study
  Country: AR (occurrence: AR)
  Receive Date: 20210624
  Receipt Date: 20210708
  Transmission Date: 20211014
  Serious: No
  Sender: FDA-Public Use
  Company Number: NVSC2021AR137911

PATIENT
  Sex: Male
  Weight: 100 kg

DRUGS (7)
  1. ENTRESTO [Suspect]
     Active Substance: SACUBITRIL\VALSARTAN
     Dosage: (ONE OF 50 MG),QD
     Route: 065
  2. ALDACTONE [Concomitant]
     Active Substance: SPIRONOLACTONE
     Indication: CARDIAC FAILURE
     Dosage: UNK UNK, UNKNOWN (STOPPED 3 OR 4 MONTHS AGO)
     Route: 065
  3. ENTRESTO [Suspect]
     Active Substance: SACUBITRIL\VALSARTAN
     Indication: CARDIAC FAILURE
     Dosage: (HALF OF 50 MG), QD
     Route: 065
     Dates: start: 202102
  4. XARELTO [Concomitant]
     Active Substance: RIVAROXABAN
     Indication: PRODUCT USED FOR UNKNOWN INDICATION
     Dosage: UNK UNK, UNKNOWN (STARTED 3 OR 4 YEARS AGO)
     Route: 065
  5. DBI AP [Concomitant]
     Active Substance: METFORMIN HYDROCHLORIDE
     Indication: TYPE 1 DIABETES MELLITUS
     Dosage: UNK UNK, UNKNOWN
     Route: 065
  6. ENTRESTO [Suspect]
     Active Substance: SACUBITRIL\VALSARTAN
     Dosage: TWO OF 50 MG, IN THE MORNING AND AT NIGHT, BID
     Route: 065
  7. ALDACTONE [Concomitant]
     Active Substance: SPIRONOLACTONE
     Dosage: 0.25 MG, UNKNOWN (STARTED 3 OR 4 MONTHS AGO)
     Route: 065

REACTIONS (3)
  - Wrong technique in product usage process [Unknown]
  - Memory impairment [Unknown]
  - Off label use [Unknown]
